FAERS Safety Report 6249017-5 (Version None)
Quarter: 2009Q2

REPORT INFORMATION
  Report Type: 
  Country: None (occurrence: None)
  Receive Date: 20090624
  Receipt Date: 20090624
  Transmission Date: 20091009
  Serious: Yes (Other)
  Sender: FDA-Public Use
  Company Number: None

PATIENT

DRUGS (2)
  1. CHLORAPREP ONE-STEP FREPP [Suspect]
     Dates: start: 20090501, end: 20090515
  2. . [Concomitant]

REACTIONS (2)
  - LACERATION [None]
  - PRODUCT QUALITY ISSUE [None]
